FAERS Safety Report 12521310 (Version 2)
Quarter: 2017Q4

REPORT INFORMATION
  Report Type: Spontaneous
  Country: US (occurrence: US)
  Receive Date: 20160701
  Receipt Date: 20171011
  Transmission Date: 20180320
  Serious: Yes (Hospitalization)
  Sender: FDA-Public Use
  Company Number: US-SUN PHARMACEUTICAL INDUSTRIES LTD-2016US-119159

PATIENT
  Age: 46 Year
  Sex: Male

DRUGS (4)
  1. OXYCONTIN [Suspect]
     Active Substance: OXYCODONE HYDROCHLORIDE
     Indication: BACK PAIN
     Dosage: 400 MG
     Route: 048
  2. OXYCODONE [Suspect]
     Active Substance: OXYCODONE
     Indication: BACK PAIN
     Dosage: 35 TABLETS (350 MG)
     Route: 048
  3. VALIUM [Suspect]
     Active Substance: DIAZEPAM
     Indication: PRODUCT USED FOR UNKNOWN INDICATION
     Route: 048
  4. SOMA [Suspect]
     Active Substance: CARISOPRODOL
     Indication: PRODUCT USED FOR UNKNOWN INDICATION
     Dosage: 350 MG
     Route: 048

REACTIONS (5)
  - Hydrocephalus [Recovering/Resolving]
  - Toxic leukoencephalopathy [Recovering/Resolving]
  - Encephalitis [Recovering/Resolving]
  - Respiratory depression [Recovering/Resolving]
  - Overdose [Recovering/Resolving]
